FAERS Safety Report 15187954 (Version 2)
Quarter: 2018Q3

REPORT INFORMATION
  Report Type: Report from Study
  Country: BE (occurrence: BE)
  Receive Date: 20180724
  Receipt Date: 20180807
  Transmission Date: 20181010
  Serious: Yes (Hospitalization, Other)
  Sender: FDA-Public Use
  Company Number: BE-ASTRAZENECA-2018SE91425

PATIENT
  Age: 20876 Day
  Sex: Male

DRUGS (4)
  1. AZD9150 [Suspect]
     Active Substance: DANVATIRSEN
     Indication: SQUAMOUS CELL CARCINOMA OF HEAD AND NECK
     Route: 042
     Dates: start: 20171204
  2. OMEPRAZOLE. [Concomitant]
     Active Substance: OMEPRAZOLE
     Indication: ABDOMINAL PAIN UPPER
     Dosage: 40M2 EVERY DAY
     Route: 048
     Dates: start: 20171115
  3. MEDI4736 [Suspect]
     Active Substance: DURVALUMAB
     Indication: SQUAMOUS CELL CARCINOMA OF HEAD AND NECK
     Route: 042
     Dates: start: 20171204
  4. D CURE [Concomitant]
     Indication: HYPOVITAMINOSIS
     Route: 048
     Dates: start: 20171115, end: 20171215

REACTIONS (1)
  - Dysphagia [Recovered/Resolved]

NARRATIVE: CASE EVENT DATE: 20171129
